FAERS Safety Report 4730297-X (Version None)
Quarter: 2005Q3

REPORT INFORMATION
  Report Type: 
  Country: None (occurrence: None)
  Receive Date: 20050725
  Receipt Date: 20050411
  Transmission Date: 20060218
  Serious: No
  Sender: FDA-Public Use
  Company Number: USA050495381

PATIENT
  Age: 11 Year
  Sex: Female
  Weight: 33 kg

DRUGS (9)
  1. STRATTERA [Suspect]
     Indication: ATTENTION DEFICIT/HYPERACTIVITY DISORDER
     Dosage: 25 MG AT BEDTIME
     Dates: start: 20050301
  2. ALBUTEROL [Concomitant]
  3. CONCERTA [Concomitant]
  4. BIAXIN [Concomitant]
  5. SINGULAIR (MONTELUKAST) [Concomitant]
  6. ALLEGRA [Concomitant]
  7. ADVAIR DISKUS 100/50 [Concomitant]
  8. FLONASE [Concomitant]
  9. PAXIL CR [Concomitant]

REACTIONS (1)
  - DYSPNOEA [None]
